FAERS Safety Report 4587543-5 (Version None)
Quarter: 2005Q1

REPORT INFORMATION
  Report Type: 
  Country: None (occurrence: None)
  Receive Date: 20050125
  Receipt Date: 20040831
  Transmission Date: 20050727
  Serious: No
  Sender: FDA-Public Use
  Company Number: USA040977088

PATIENT
  Sex: Female

DRUGS (3)
  1. FORTEO [Suspect]
     Indication: OSTEOPOROSIS
     Dates: start: 20040818
  2. PROVERA [Concomitant]
  3. OGEN [Concomitant]

REACTIONS (3)
  - ABDOMINAL PAIN LOWER [None]
  - BACK PAIN [None]
  - RENAL PAIN [None]
